FAERS Safety Report 8592801-3 (Version None)
Quarter: 2012Q3

REPORT INFORMATION
  Report Type: 
  Country: None (occurrence: None)
  Receive Date: 20120814
  Receipt Date: 20120801
  Transmission Date: 20120928
  Serious: No
  Sender: FDA-Public Use
  Company Number: US-BAYER-2012-079335

PATIENT
  Sex: Female

DRUGS (2)
  1. ALEVE (CAPLET) [Suspect]
     Indication: ANALGESIC THERAPY
     Dosage: 2 DF, BID
     Route: 048
  2. ALEVE (CAPLET) [Suspect]
     Dosage: SOMETIMES I TAKE MORE THAN 4 A DAY.

REACTIONS (1)
  - NO ADVERSE EVENT [None]
